FAERS Safety Report 5482596-4 (Version None)
Quarter: 2007Q4

REPORT INFORMATION
  Report Type: 
  Country: None (occurrence: None)
  Receive Date: 20071011
  Receipt Date: 20070801
  Transmission Date: 20080405
  Serious: No
  Sender: FDA-Public Use
  Company Number: A0667640A

PATIENT
  Age: 30 Year
  Sex: Female

DRUGS (3)
  1. TYKERB [Suspect]
     Indication: BREAST CANCER
     Dosage: 5TAB PER DAY
     Route: 048
     Dates: start: 20070731
  2. OXYCODONE HCL [Concomitant]
  3. PHENERGAN HCL [Concomitant]

REACTIONS (1)
  - DIARRHOEA [None]
